FAERS Safety Report 12366255 (Version 1)
Quarter: 2016Q2

REPORT INFORMATION
  Report Type: Report from Study
  Country: US (occurrence: US)
  Receive Date: 20160513
  Receipt Date: 20160513
  Transmission Date: 20160815
  Serious: Yes (Hospitalization)
  Sender: FDA-Public Use
  Company Number: US-TAKEDA-2016MPI003902

PATIENT
  Age: 53 Year
  Sex: Female

DRUGS (1)
  1. IXAZOMIB [Suspect]
     Active Substance: IXAZOMIB
     Indication: PLASMA CELL MYELOMA
     Dosage: UNK, 1/WEEK
     Route: 048
     Dates: start: 20160106, end: 20160423

REACTIONS (3)
  - Nausea [Unknown]
  - Dehydration [Unknown]
  - Vomiting [Unknown]

NARRATIVE: CASE EVENT DATE: 20160429
